FAERS Safety Report 10252086 (Version 4)
Quarter: 2014Q3

REPORT INFORMATION
  Report Type: Report from Study
  Country: US (occurrence: US)
  Receive Date: 20140623
  Receipt Date: 20140903
  Transmission Date: 20150326
  Serious: Yes (Hospitalization, Other)
  Sender: FDA-Public Use
  Company Number: PHEH2014US012458

PATIENT
  Sex: Female

DRUGS (1)
  1. DIOVAN [Suspect]
     Active Substance: VALSARTAN
     Dosage: 1 DF, PER DAY (160 MG)
     Route: 048

REACTIONS (3)
  - Post procedural swelling [Unknown]
  - Post procedural infection [Unknown]
  - Thyroid cancer [Unknown]
